FAERS Safety Report 17787648 (Version 1)
Quarter: 2020Q2

REPORT INFORMATION
  Report Type: Spontaneous
  Country: US (occurrence: US)
  Receive Date: 20200514
  Receipt Date: 20200514
  Transmission Date: 20200714
  Serious: Yes (Death, Hospitalization)
  Sender: FDA-Public Use
  Company Number: US-ACTELION-A-NJ2019-198663

PATIENT
  Age: 76 Year
  Sex: Female

DRUGS (11)
  1. VESICARE [Concomitant]
     Active Substance: SOLIFENACIN SUCCINATE
  2. FUROSEMIDE. [Concomitant]
     Active Substance: FUROSEMIDE
  3. CITALOPRAM [Concomitant]
     Active Substance: CITALOPRAM HYDROBROMIDE
  4. AMLODIPINE [Concomitant]
     Active Substance: AMLODIPINE BESYLATE
  5. OPSUMIT [Suspect]
     Active Substance: MACITENTAN
     Indication: PULMONARY ARTERIAL HYPERTENSION
     Dosage: 10 MG, QD
     Route: 048
     Dates: start: 20131213, end: 20200420
  6. LOSARTAN POTASSIUM/HYDROCHLOROTHIAZIDE [Concomitant]
     Active Substance: HYDROCHLOROTHIAZIDE\LOSARTAN POTASSIUM
  7. AMOXICILLIN. [Concomitant]
     Active Substance: AMOXICILLIN
  8. HECTOROL [Concomitant]
     Active Substance: DOXERCALCIFEROL
  9. LEVOTHYROXIN [Concomitant]
     Active Substance: LEVOTHYROXINE
  10. OMEPRAZOLE. [Concomitant]
     Active Substance: OMEPRAZOLE
  11. FLUTICASONE. [Concomitant]
     Active Substance: FLUTICASONE

REACTIONS (2)
  - Death [Fatal]
  - Nasopharyngitis [Unknown]

NARRATIVE: CASE EVENT DATE: 20200420
